FAERS Safety Report 8943823 (Version 1)
Quarter: 2012Q4

REPORT INFORMATION
  Report Type: Report from Study
  Country: CA (occurrence: CA)
  Receive Date: 20121204
  Receipt Date: 20121204
  Transmission Date: 20130627
  Serious: Yes (Hospitalization)
  Sender: FDA-Public Use
  Company Number: CA-JNJFOC-20121112671

PATIENT
  Age: 41 Year
  Sex: Male
  Weight: 96.9 kg

DRUGS (2)
  1. REMICADE [Suspect]
     Indication: COLITIS ULCERATIVE
     Route: 042
     Dates: start: 20121012
  2. PREDNISONE [Concomitant]
     Route: 065
     Dates: end: 20121123

REACTIONS (2)
  - Pain [Recovering/Resolving]
  - Abdominal pain upper [Recovering/Resolving]
